FAERS Safety Report 5727722-4 (Version None)
Quarter: 2008Q2

REPORT INFORMATION
  Report Type: 
  Country: None (occurrence: None)
  Receive Date: 20080505
  Receipt Date: 20080429
  Transmission Date: 20081010
  Serious: Yes (Other)
  Sender: FDA-Public Use
  Company Number: US-ASTRAZENECA-2002UW17207

PATIENT
  Age: 46 Year
  Sex: Female
  Weight: 81.8 kg

DRUGS (8)
  1. NEXIUM [Suspect]
     Indication: GASTROOESOPHAGEAL REFLUX DISEASE
     Route: 048
  2. ALLEGRA [Concomitant]
  3. TOPROL-XL [Concomitant]
     Route: 048
  4. AROMASIN [Concomitant]
  5. FLUOXETINE [Concomitant]
  6. RISPERDAL [Concomitant]
  7. CLONAZEPAM [Concomitant]
  8. GAPENTIN 300 [Concomitant]

REACTIONS (2)
  - BREAST CANCER [None]
  - DIARRHOEA [None]
